FAERS Safety Report 14347213 (Version 2)
Quarter: 2018Q1

REPORT INFORMATION
  Report Type: Spontaneous
  Country: GB (occurrence: GB)
  Receive Date: 20180103
  Receipt Date: 20180131
  Transmission Date: 20180509
  Serious: Yes (Other)
  Sender: FDA-Public Use
  Company Number: GB-SA-2017SA269224

PATIENT
  Age: 31 Year
  Sex: Male

DRUGS (2)
  1. LEMTRADA [Suspect]
     Active Substance: ALEMTUZUMAB
     Route: 041
     Dates: start: 201612, end: 201612
  2. LEMTRADA [Suspect]
     Active Substance: ALEMTUZUMAB
     Route: 041
     Dates: start: 201702, end: 201702

REACTIONS (5)
  - Immune thrombocytopenic purpura [Recovering/Resolving]
  - Epistaxis [Recovered/Resolved]
  - Contusion [Unknown]
  - Gingival bleeding [Recovered/Resolved]
  - Skin discolouration [Unknown]
